FAERS Safety Report 4284241-2 (Version None)
Quarter: 2004Q1

REPORT INFORMATION
  Report Type: 
  Country: None (occurrence: None)
  Receive Date: 20040203
  Receipt Date: 20040129
  Transmission Date: 20041129
  Serious: Yes (Hospitalization)
  Sender: FDA-Public Use
  Company Number: FR-ROCHE-357458

PATIENT
  Age: 55 Year
  Sex: Male

DRUGS (4)
  1. RIVOTRIL [Suspect]
     Indication: DRUG USE FOR UNKNOWN INDICATION
     Route: 048
     Dates: start: 20030701, end: 20030925
  2. TEGRETOL [Suspect]
     Indication: DRUG USE FOR UNKNOWN INDICATION
     Route: 048
     Dates: start: 20030515, end: 20030912
  3. CORTANCYL [Concomitant]
     Route: 048
  4. HYDROCORTISONE [Concomitant]
     Route: 042
     Dates: start: 20030707, end: 20030716

REACTIONS (10)
  - ALOPECIA [None]
  - BLOOD BILIRUBIN INCREASED [None]
  - DRUG ERUPTION [None]
  - ECZEMA [None]
  - ERYTHEMA [None]
  - HYPERKERATOSIS [None]
  - LYMPHADENOPATHY [None]
  - MADAROSIS [None]
  - PRURITUS [None]
  - SKIN DESQUAMATION [None]
